FAERS Safety Report 5932976-5 (Version None)
Quarter: 2008Q4

REPORT INFORMATION
  Report Type: 
  Country: None (occurrence: None)
  Receive Date: 20081027
  Receipt Date: 20081027
  Transmission Date: 20090506
  Serious: Yes (Other)
  Sender: FDA-Public Use
  Company Number: None

PATIENT
  Age: 5 Year
  Sex: Male
  Weight: 17.6903 kg

DRUGS (1)
  1. SINGULAIR [Suspect]
     Indication: ASTHMA
     Dosage: 4MG 1 PO
     Route: 048
     Dates: start: 20081015, end: 20081024

REACTIONS (4)
  - ABDOMINAL PAIN UPPER [None]
  - AGGRESSION [None]
  - HEADACHE [None]
  - PSYCHOMOTOR HYPERACTIVITY [None]
